FAERS Safety Report 15522775 (Version 1)
Quarter: 2018Q4

REPORT INFORMATION
  Report Type: Spontaneous
  Country: US (occurrence: US)
  Receive Date: 20181017
  Receipt Date: 20181017
  Transmission Date: 20190205
  Serious: No
  Sender: FDA-Public Use
  Company Number: US-NOVOPROD-623366

PATIENT
  Age: 70 Year
  Sex: Female
  Weight: 87.75 kg

DRUGS (1)
  1. TRESIBA FLEXTOUCH U200 [Suspect]
     Active Substance: INSULIN DEGLUDEC
     Indication: TYPE 2 DIABETES MELLITUS
     Dosage: 70 U, BID
     Route: 058
     Dates: start: 201805, end: 20180916

REACTIONS (4)
  - Panic attack [Recovered/Resolved]
  - Product dose omission [Not Recovered/Not Resolved]
  - Dehydration [Unknown]
  - Product use issue [Recovered/Resolved]

NARRATIVE: CASE EVENT DATE: 201805
